FAERS Safety Report 7497047-8 (Version None)
Quarter: 2011Q2

REPORT INFORMATION
  Report Type: 
  Country: None (occurrence: None)
  Receive Date: 20110523
  Receipt Date: 20110511
  Transmission Date: 20111010
  Serious: Yes (Other)
  Sender: FDA-Public Use
  Company Number: TN-JNJFOC-20110508687

PATIENT
  Age: 40 Year
  Sex: Male

DRUGS (3)
  1. FUNGIZONE [Suspect]
     Indication: KERATITIS FUNGAL
     Route: 047
  2. NIZORAL [Suspect]
     Indication: KERATITIS FUNGAL
     Route: 065
  3. CORTICOSTEROIDS [Suspect]
     Indication: PRODUCT USED FOR UNKNOWN INDICATION
     Route: 061

REACTIONS (2)
  - CORNEAL OPACITY [None]
  - DRUG INEFFECTIVE [None]
